FAERS Safety Report 13263845 (Version 1)
Quarter: 2017Q1

REPORT INFORMATION
  Report Type: Spontaneous
  Country: US (occurrence: US)
  Receive Date: 20170222
  Receipt Date: 20170222
  Transmission Date: 20170428
  Serious: Yes (Life-Threatening, Hospitalization, Disabling)
  Sender: FDA-Public Use
  Company Number: None

PATIENT
  Age: 15 Year
  Sex: Female
  Weight: 72.4 kg

DRUGS (1)
  1. PEGASPARGASE [Suspect]
     Active Substance: PEGASPARGASE
     Indication: ACUTE LYMPHOCYTIC LEUKAEMIA
     Dosage: ?          OTHER FREQUENCY:ONCE;?
     Route: 041
     Dates: start: 20160804, end: 20160920

REACTIONS (10)
  - Febrile neutropenia [None]
  - Venoocclusive liver disease [None]
  - Pancreatic pseudocyst [None]
  - Pancytopenia [None]
  - Acute kidney injury [None]
  - Pancreatitis necrotising [None]
  - Hyperglycaemia [None]
  - Pancreatitis acute [None]
  - Liver injury [None]
  - Multiple organ dysfunction syndrome [None]

NARRATIVE: CASE EVENT DATE: 20161008
